FAERS Safety Report 7949472-6 (Version None)
Quarter: 2011Q4

REPORT INFORMATION
  Report Type: 
  Country: None (occurrence: None)
  Receive Date: 20111130
  Receipt Date: 20111124
  Transmission Date: 20120403
  Serious: Yes (Death)
  Sender: FDA-Public Use
  Company Number: BE-GLAXOSMITHKLINE-B0766087A

PATIENT
  Age: 19 Year
  Sex: Female

DRUGS (1)
  1. TROBALT [Suspect]
     Indication: PARTIAL SEIZURES
     Dosage: 50MG PER DAY
     Route: 048

REACTIONS (4)
  - MENINGOCOCCAL SEPSIS [None]
  - INFLUENZA LIKE ILLNESS [None]
  - URTICARIA [None]
  - HYPERSENSITIVITY [None]
